FAERS Safety Report 8458744-0 (Version None)
Quarter: 2012Q2

REPORT INFORMATION
  Report Type: 
  Country: None (occurrence: None)
  Receive Date: 20120622
  Receipt Date: 20120620
  Transmission Date: 20120825
  Serious: No
  Sender: FDA-Public Use
  Company Number: US-TEVA-344403USA

PATIENT
  Sex: Male
  Weight: 68.1 kg

DRUGS (4)
  1. SERTRALINE HYDROCHLORIDE [Interacting]
     Indication: DEPRESSION
     Route: 048
     Dates: start: 19980101
  2. NUVIGIL [Interacting]
     Route: 048
     Dates: start: 20120618
  3. CLONAZEPAM [Interacting]
     Indication: SLEEP DISORDER
     Route: 048
     Dates: start: 19980101
  4. NUVIGIL [Suspect]
     Indication: SOMNOLENCE
     Route: 048
     Dates: start: 20120618

REACTIONS (4)
  - DYSPNOEA [None]
  - DRUG INTERACTION [None]
  - DIZZINESS [None]
  - ANXIETY [None]
